FAERS Safety Report 7334654-7 (Version None)
Quarter: 2011Q1

REPORT INFORMATION
  Report Type: 
  Country: None (occurrence: None)
  Receive Date: 20110307
  Receipt Date: 20110223
  Transmission Date: 20110831
  Serious: Yes (Death, Other)
  Sender: FDA-Public Use
  Company Number: JP-SANOFI-AVENTIS-2011SA003848

PATIENT
  Age: 66 Year
  Sex: Female
  Weight: 47 kg

DRUGS (14)
  1. ELPLAT [Suspect]
     Indication: COLON CANCER
     Route: 041
     Dates: start: 20100518, end: 20100518
  2. DEXAMETHASONE SODIUM PHOSPHATE [Concomitant]
     Indication: PREMEDICATION
     Route: 041
     Dates: start: 20100518, end: 20100601
  3. NEUTROGIN [Concomitant]
     Indication: FEBRILE NEUTROPENIA
     Route: 058
     Dates: start: 20100610, end: 20100615
  4. ELPLAT [Suspect]
     Route: 041
     Dates: start: 20100601, end: 20100601
  5. GRANISETRON HCL [Concomitant]
     Indication: PREMEDICATION
     Route: 041
     Dates: start: 20100518, end: 20100601
  6. VENOGLOBULIN [Concomitant]
     Indication: INFECTION
     Route: 041
     Dates: start: 20100610, end: 20100612
  7. 5-FU [Suspect]
     Route: 041
     Dates: start: 20100601, end: 20100602
  8. CALCIUM LEVOFOLINATE [Concomitant]
     Indication: COLON CANCER
     Route: 042
     Dates: start: 20100518, end: 20100518
  9. FLUCONAZOLE [Concomitant]
     Indication: INFECTION
     Route: 041
     Dates: start: 20100610, end: 20100613
  10. 5-FU [Suspect]
     Route: 040
     Dates: start: 20100601, end: 20100601
  11. 5-FU [Suspect]
     Indication: COLON CANCER
     Route: 040
     Dates: start: 20100518, end: 20100518
  12. CALCIUM LEVOFOLINATE [Concomitant]
     Route: 042
     Dates: start: 20100601, end: 20100601
  13. CIPROFLOXACIN HCL [Concomitant]
     Indication: INFECTION
     Route: 041
     Dates: start: 20100610, end: 20100615
  14. 5-FU [Suspect]
     Route: 041
     Dates: start: 20100518, end: 20100519

REACTIONS (3)
  - PLATELET COUNT DECREASED [None]
  - NEUTROPHIL COUNT DECREASED [None]
  - PNEUMONIA [None]
